FAERS Safety Report 8263980-2 (Version None)
Quarter: 2012Q2

REPORT INFORMATION
  Report Type: 
  Country: None (occurrence: None)
  Receive Date: 20120406
  Receipt Date: 20120329
  Transmission Date: 20120825
  Serious: Yes (Hospitalization)
  Sender: FDA-Public Use
  Company Number: AR-BIOGENIDEC-2012BI011191

PATIENT
  Sex: Female

DRUGS (2)
  1. ANASTROZOLE [Concomitant]
  2. AVONEX [Suspect]
     Indication: MULTIPLE SCLEROSIS
     Route: 030
     Dates: start: 20101101, end: 20120301

REACTIONS (3)
  - CELLULITIS [None]
  - VASCULITIS [None]
  - HYPERSENSITIVITY [None]
